FAERS Safety Report 6528791-4 (Version None)
Quarter: 2010Q1

REPORT INFORMATION
  Report Type: 
  Country: None (occurrence: None)
  Receive Date: 20100106
  Receipt Date: 20091223
  Transmission Date: 20100710
  Serious: No
  Sender: FDA-Public Use
  Company Number: US-B.I. PHARMACEUTICALS,INC./RIDGEFIELD-2010-BP-00121BP

PATIENT

DRUGS (1)
  1. FLOMAX [Suspect]
     Dosage: 1.6 MG
     Route: 048

REACTIONS (1)
  - OVERDOSE [None]
